FAERS Safety Report 7978704-3 (Version None)
Quarter: 2011Q4

REPORT INFORMATION
  Report Type: 
  Country: None (occurrence: None)
  Receive Date: 20111214
  Receipt Date: 20111205
  Transmission Date: 20120403
  Serious: Yes (Death)
  Sender: FDA-Public Use
  Company Number: JP-ASTELLAS-2011JP009040

PATIENT
  Age: 5 Year
  Sex: Male

DRUGS (7)
  1. THIOTEPA [Concomitant]
     Route: 065
  2. PROGRAF [Suspect]
     Indication: PROPHYLAXIS AGAINST GRAFT VERSUS HOST DISEASE
     Dosage: UNK
     Route: 042
  3. PROGRAF [Suspect]
     Route: 048
  4. FLUDARABINE PHOSPHATE [Concomitant]
     Route: 065
  5. PREDNISOLONE [Concomitant]
     Indication: PROPHYLAXIS AGAINST GRAFT VERSUS HOST DISEASE
     Dosage: 1 MG/KG, UNKNOWN/D
     Route: 065
  6. ANTI-THYMOCYTE GLOBULIN NOS [Concomitant]
     Route: 065
  7. METHOTREXATE [Concomitant]
     Indication: PROPHYLAXIS AGAINST GRAFT VERSUS HOST DISEASE
     Route: 042

REACTIONS (1)
  - PANCREATITIS ACUTE [None]
